FAERS Safety Report 19801440 (Version 1)
Quarter: 2021Q3

REPORT INFORMATION
  Report Type: Spontaneous
  Country: DE (occurrence: DE)
  Receive Date: 20210907
  Receipt Date: 20210907
  Transmission Date: 20211014
  Serious: Yes (Congenital Anomaly, Other)
  Sender: FDA-Public Use
  Company Number: NVSC2021DE196478

PATIENT
  Age: 1 Day
  Sex: Female
  Weight: .97 kg

DRUGS (9)
  1. AZITHROMYCIN ANHYDROUS. [Concomitant]
     Active Substance: AZITHROMYCIN ANHYDROUS
     Indication: FOETAL EXPOSURE DURING PREGNANCY
     Dosage: MATERNAL DOSE: 500 [MG/D (BIS 250) ] (MATERNAL EXPOSURE DURING PREGNANCY)
     Route: 064
  2. NIFEDIPINE. [Concomitant]
     Active Substance: NIFEDIPINE
     Indication: FOETAL EXPOSURE DURING PREGNANCY
     Dosage: MATERNAL DOSE: UNK (MATERNAL EXPOSURE DURING PREGNANCY)
     Route: 064
  3. AMBROXOL [Concomitant]
     Active Substance: AMBROXOL
     Indication: FOETAL EXPOSURE DURING PREGNANCY
     Dosage: MATERNAL DOSE: 90 [MG/D (3 X 30 MG) ] (MATERNAL EXPOSURE DURING PREGNANCY)
     Route: 064
  4. FOLIC ACID. [Concomitant]
     Active Substance: FOLIC ACID
     Indication: FOETAL EXPOSURE DURING PREGNANCY
     Dosage: MATERNAL DOSE: 5 [MG/D ] (MATERNAL EXPOSURE DURING PREGNANCY)
     Route: 064
  5. PARACETAMOL [Concomitant]
     Active Substance: ACETAMINOPHEN
     Indication: FOETAL EXPOSURE DURING PREGNANCY
     Dosage: MATERNAL DOSE: 1000 [MG/D (BIS 500, BEI BEDARF) ] (MATERNAL EXPOSURE DURING PREGNANCY)
     Route: 064
  6. ACC [Suspect]
     Active Substance: ACETYLCYSTEINE
     Indication: FOETAL EXPOSURE DURING PREGNANCY
     Dosage: (11.4. ? 12.3. GESTATIONAL WEEK) (MATERNAL EXPOSURE DURING PREGNANCY)
     Route: 064
  7. XYLOMETAZOLINE [Concomitant]
     Active Substance: XYLOMETAZOLINE
     Indication: FOETAL EXPOSURE DURING PREGNANCY
     Dosage: MATERNAL DOSE: UNK (MATERNAL EXPOSURE DURING PREGNANCY)
     Route: 064
  8. PREDNISOLONE. [Suspect]
     Active Substance: PREDNISOLONE
     Indication: FOETAL EXPOSURE DURING PREGNANCY
     Dosage: MATERNAL DOSE: 15 [MG/D (BIS 2.5) ]/ INITIALLY 15MG/D, FROM GW 11: 10 MG/D, THEN FURTHER REDUCTION (
     Route: 064
  9. CLEXANE [Concomitant]
     Active Substance: ENOXAPARIN SODIUM
     Indication: FOETAL EXPOSURE DURING PREGNANCY
     Dosage: MATERNAL DOSE : 40 [MG/D ] (MATERNAL EXPOSURE DURING PREGNANCY)
     Route: 064

REACTIONS (6)
  - Foetal exposure during pregnancy [Unknown]
  - Congenital umbilical hernia [Unknown]
  - Premature baby [Unknown]
  - Atrial septal defect [Unknown]
  - Neonatal respiratory distress syndrome [Recovered/Resolved]
  - Patent ductus arteriosus [Recovered/Resolved]

NARRATIVE: CASE EVENT DATE: 20200529
